FAERS Safety Report 8430830 (Version 4)
Quarter: 2013Q1

REPORT INFORMATION
  Report Type: Spontaneous
  Country: JP (occurrence: None)
  Receive Date: 20120215
  Receipt Date: 20121109
  Transmission Date: 20140127
  Serious: Yes (Hospitalization, Other)
  Sender: FDA-Public Use
  Company Number: ADR-2012-00321

PATIENT
  Age: 6 Year
  Sex: Female

DRUGS (1)
  1. BACLOFEN [Suspect]
     Dosage: SEE B5

REACTIONS (7)
  - Bronchitis [None]
  - Hypertonia [None]
  - Pneumonia [None]
  - Obstructive airways disorder [None]
  - Epilepsy [None]
  - Asthenia [None]
  - Contusion [None]
